FAERS Safety Report 25602116 (Version 1)
Quarter: 2025Q3

REPORT INFORMATION
  Report Type: Spontaneous
  Country: US (occurrence: None)
  Receive Date: 20250723
  Receipt Date: 20250723
  Transmission Date: 20251021
  Serious: Yes (Other)
  Sender: FDA-CTU
  Company Number: None

PATIENT
  Age: 68 Year
  Sex: Male
  Weight: 90 kg

DRUGS (11)
  1. SYSTANE COMPLETE PF [Suspect]
     Active Substance: PROPYLENE GLYCOL
     Indication: Eye pain
     Dosage: FREQUENCY : AT BEDTIME;?
     Route: 047
     Dates: start: 20250626, end: 20250627
  2. REFRESH RELIEVA [Suspect]
     Active Substance: CARBOXYMETHYLCELLULOSE SODIUM\GLYCERIN
  3. LISINOPRIL [Concomitant]
     Active Substance: LISINOPRIL
  4. CARVEDILOL [Concomitant]
     Active Substance: CARVEDILOL
  5. ATORVASTATIN [Concomitant]
     Active Substance: ATORVASTATIN
  6. ALPRAZOLAM [Concomitant]
     Active Substance: ALPRAZOLAM
  7. TRAMADOL [Concomitant]
     Active Substance: TRAMADOL
  8. PREGABALIN [Concomitant]
     Active Substance: PREGABALIN
  9. VITAMIN B COMPLEX [Concomitant]
     Active Substance: CYANOCOBALAMIN\DEXPANTHENOL\NIACINAMIDE\PYRIDOXINE HYDROCHLORIDE\RIBOFLAVIN 5^-PHOSPHATE SODIUM\THIA
  10. VITAMIN D3 [Concomitant]
     Active Substance: CHOLECALCIFEROL
  11. ZINC [Concomitant]
     Active Substance: ZINC

REACTIONS (9)
  - Pharyngeal swelling [None]
  - Influenza [None]
  - Vision blurred [None]
  - Periorbital swelling [None]
  - Glassy eyes [None]
  - Therapy change [None]
  - Drug ineffective [None]
  - Erythema of eyelid [None]
  - Lacrimation increased [None]

NARRATIVE: CASE EVENT DATE: 20250626
